FAERS Safety Report 10218906 (Version 1)
Quarter: 2014Q2

REPORT INFORMATION
  Report Type: Spontaneous
  Country: US (occurrence: None)
  Receive Date: 20140604
  Receipt Date: 20140604
  Transmission Date: 20141212
  Serious: Yes (Other)
  Sender: FDA-Public Use
  Company Number: None

PATIENT
  Sex: 0

DRUGS (1)
  1. PROHANCE [Suspect]
     Indication: SCAN WITH CONTRAST
     Dosage: ONE TIME DOSE
     Route: 042
     Dates: start: 20140520, end: 20140602

REACTIONS (3)
  - Vomiting [None]
  - Nausea [None]
  - Product quality issue [None]
